FAERS Safety Report 5311360-1 (Version None)
Quarter: 2007Q2

REPORT INFORMATION
  Report Type: 
  Country: None (occurrence: None)
  Receive Date: 20070430
  Receipt Date: 20070420
  Transmission Date: 20071010
  Serious: Yes (Other)
  Sender: FDA-Public Use
  Company Number: PHEH2007US06123

PATIENT
  Sex: Female

DRUGS (1)
  1. ZELNORM [Suspect]
     Indication: IRRITABLE BOWEL SYNDROME
     Dosage: 6 MG, BID
     Route: 048

REACTIONS (8)
  - CARDIAC DISORDER [None]
  - DIARRHOEA [None]
  - EXTRASYSTOLES [None]
  - FLATULENCE [None]
  - HAEMATOCHEZIA [None]
  - HEADACHE [None]
  - HEART RATE INCREASED [None]
  - MIGRAINE [None]
